FAERS Safety Report 9747010 (Version 2)
Quarter: 2013Q4

REPORT INFORMATION
  Report Type: Spontaneous
  Country: FR (occurrence: FR)
  Receive Date: 20131211
  Receipt Date: 20131223
  Transmission Date: 20140711
  Serious: Yes (Other)
  Sender: FDA-Public Use
  Company Number: FR-ABBVIE-13P-056-1178446-00

PATIENT
  Age: 64 Year
  Sex: Male

DRUGS (10)
  1. DEPAKINE [Suspect]
     Indication: BIPOLAR DISORDER
     Route: 048
     Dates: start: 20131008, end: 20131025
  2. DEPAKINE [Suspect]
     Route: 048
     Dates: start: 20131025
  3. DEPAKINE [Suspect]
     Route: 048
     Dates: start: 20131108
  4. DEPAKINE [Suspect]
     Route: 048
     Dates: start: 20131112, end: 20131112
  5. DEPAKINE [Suspect]
     Route: 048
     Dates: start: 20131113, end: 20131114
  6. HALOPERIDOL DECANOATE [Suspect]
     Indication: BIPOLAR DISORDER
     Route: 048
     Dates: start: 20131015, end: 20131024
  7. HALDOL DECANOAS [Suspect]
     Indication: BIPOLAR DISORDER
     Route: 030
     Dates: start: 20131023, end: 20131023
  8. VALIUM [Concomitant]
     Indication: BIPOLAR DISORDER
     Route: 048
  9. AMOXICILLIN/CLAVULANIC ACID [Concomitant]
     Indication: PRODUCT USED FOR UNKNOWN INDICATION
     Dates: start: 20131018
  10. ROCEPHINE [Concomitant]
     Indication: PRODUCT USED FOR UNKNOWN INDICATION
     Dates: start: 20131024, end: 20131030

REACTIONS (2)
  - Off label use [Unknown]
  - Neutropenia [Unknown]
